FAERS Safety Report 16562486 (Version 1)
Quarter: 2019Q3

REPORT INFORMATION
  Report Type: Spontaneous
  Country: IS (occurrence: IS)
  Receive Date: 20190711
  Receipt Date: 20190711
  Transmission Date: 20191004
  Serious: Yes (Other)
  Sender: FDA-Public Use
  Company Number: IS-TEVA-2019-IS-1074912

PATIENT
  Age: 58 Year
  Sex: Male

DRUGS (1)
  1. AMOXIN 750 MG FILMUH??U? TAFLA [Suspect]
     Active Substance: AMOXICILLIN
     Indication: SINUSITIS
     Dosage: 750 MILLIGRAM FOR EVERY 12 HOURS 1 X 2
     Dates: start: 20190409, end: 20190413

REACTIONS (3)
  - Haematochezia [Recovering/Resolving]
  - Abdominal pain [Recovering/Resolving]
  - Diarrhoea [Recovering/Resolving]

NARRATIVE: CASE EVENT DATE: 20190412
